FAERS Safety Report 10286271 (Version 5)
Quarter: 2015Q1

REPORT INFORMATION
  Report Type: Spontaneous
  Country: GB (occurrence: GB)
  Receive Date: 20140709
  Receipt Date: 20150303
  Transmission Date: 20150720
  Serious: Yes (Death)
  Sender: FDA-Public Use
  Company Number: GB-JNJFOC-20140703117

PATIENT
  Age: 27 Year
  Sex: Female

DRUGS (9)
  1. HYOSCINE HYDROBROMIDE [Concomitant]
     Active Substance: SCOPOLAMINE
     Indication: SALIVARY HYPERSECRETION
     Dosage: TAKEN AT NIGHT, 300 DOSE NOT SPECIFIED
     Route: 065
  2. LORAZEPAM. [Concomitant]
     Active Substance: LORAZEPAM
     Indication: ANXIETY
     Dosage: UPTO 4MG AS NEEDED
     Route: 065
  3. PROCYCLIDINE [Suspect]
     Active Substance: PROCYCLIDINE
     Indication: EXTRAPYRAMIDAL DISORDER
     Dosage: AS REQUIRED, 5 TO 30 MG PER DAY VARIED BETWEEN 10 AND 20 MG DAILY
     Route: 065
     Dates: start: 20130112, end: 20130116
  4. HALOPERIDOL. [Suspect]
     Active Substance: HALOPERIDOL
     Indication: PSYCHOTIC BEHAVIOUR
     Dosage: VARIED BETWEEN 5 MG 3 TIMES A DAY AND 3 MG THREE TIMES A DAY PLUS AS NEEDED
     Route: 065
     Dates: start: 20130103, end: 20130103
  5. IBUPROFEN. [Concomitant]
     Active Substance: IBUPROFEN
     Indication: PAIN
     Dosage: TAKEN AT NIGHT
     Route: 065
  6. PARACETAMOL [Concomitant]
     Active Substance: ACETAMINOPHEN
     Route: 065
  7. HALOPERIDOL. [Suspect]
     Active Substance: HALOPERIDOL
     Indication: PSYCHOTIC BEHAVIOUR
     Dosage: VARIED BETWEEN 5 MG 3 TIMES A DAY AND 3 MG THREE TIMES A DAY PLUS AS NEEDED
     Route: 065
     Dates: end: 20130117
  8. CO-AMOXICLAV [Concomitant]
     Active Substance: AMOXICILLIN\CLAVULANIC ACID
     Indication: UPPER RESPIRATORY TRACT INFECTION
     Route: 065
  9. DIAZEPAM. [Concomitant]
     Active Substance: DIAZEPAM
     Indication: AGITATION
     Route: 065

REACTIONS (7)
  - Complex partial seizures [Not Recovered/Not Resolved]
  - Arrhythmia [Fatal]
  - Tachycardia [Not Recovered/Not Resolved]
  - Body temperature fluctuation [Not Recovered/Not Resolved]
  - Encephalitis [Not Recovered/Not Resolved]
  - Neuroleptic malignant syndrome [Fatal]
  - Sudden cardiac death [Fatal]

NARRATIVE: CASE EVENT DATE: 20130112
